FAERS Safety Report 7296482-0 (Version None)
Quarter: 2011Q1

REPORT INFORMATION
  Report Type: 
  Country: None (occurrence: None)
  Receive Date: 20110216
  Receipt Date: 20110204
  Transmission Date: 20110831
  Serious: Yes (Hospitalization)
  Sender: FDA-Public Use
  Company Number: GXKR2008NO11265

PATIENT

DRUGS (12)
  1. RESCUVOLIN [Suspect]
  2. NEULASTA [Suspect]
     Indication: GASTROINTESTINAL CARCINOMA
     Route: 058
     Dates: start: 20080512, end: 20080517
  3. ONDANSETRON [Concomitant]
     Dosage: UNK
     Route: 065
     Dates: start: 20080515, end: 20080518
  4. DEXAMETHASONE [Suspect]
     Dosage: 8 MG, UNK
     Route: 042
     Dates: start: 20080515, end: 20080516
  5. 5-FU HEXAL [Suspect]
     Route: 042
     Dates: start: 20080515, end: 20080516
  6. OXALIPLATIN [Suspect]
     Indication: CHEMOTHERAPY
     Dosage: 750 MG, UNK
     Route: 042
     Dates: start: 20080515, end: 20080515
  7. ONDANSETRON [Concomitant]
     Route: 042
     Dates: start: 20080515, end: 20080518
  8. 5-FU HEXAL [Suspect]
     Dosage: UNK
     Route: 065
     Dates: start: 20080515
  9. NEULASTA [Suspect]
     Indication: CHEMOTHERAPY
     Dosage: UNK
     Route: 058
     Dates: start: 20080512
  10. KLEXANE [Concomitant]
  11. WARFARIN SODIUM [Concomitant]
  12. PEGFILGRASTIM [Suspect]

REACTIONS (3)
  - DYSPNOEA [None]
  - PULMONARY EMBOLISM [None]
  - CHEST PAIN [None]
